FAERS Safety Report 5090827-8 (Version None)
Quarter: 2006Q3

REPORT INFORMATION
  Report Type: 
  Country: None (occurrence: None)
  Receive Date: 20060823
  Receipt Date: 20060814
  Transmission Date: 20061208
  Serious: Yes (Hospitalization)
  Sender: FDA-Public Use
  Company Number: 2006RR-03312

PATIENT
  Age: 77 Year
  Sex: Male

DRUGS (14)
  1. METFORMIN HCL [Suspect]
     Indication: DIABETES MELLITUS NON-INSULIN-DEPENDENT
     Dosage: 1 G, TID, ORAL
     Route: 048
     Dates: end: 20060619
  2. ALLOPURINOL [Concomitant]
  3. ASPIRIN [Concomitant]
  4. BENDROFLUAZIDE (BENDROFLUMETHIAZIDE) [Concomitant]
  5. DIGOXIN [Concomitant]
  6. DIPYRIDAMOLE [Concomitant]
  7. FUROSEMIDE [Concomitant]
  8. GLIMEPIRIDE TABLET (GLIMEPIRIDE) [Concomitant]
  9. HALOPERIDOL [Concomitant]
  10. LANSOPRAZOLE [Concomitant]
  11. LISINOPRIL [Concomitant]
  12. ROSIGLITAZONE [Concomitant]
  13. SIMVASTATIN [Concomitant]
  14. TIMOLOL MALEATE [Concomitant]

REACTIONS (1)
  - LACTIC ACIDOSIS [None]
